FAERS Safety Report 5064805-9 (Version None)
Quarter: 2006Q3

REPORT INFORMATION
  Report Type: 
  Country: None (occurrence: None)
  Receive Date: 20060728
  Receipt Date: 20060721
  Transmission Date: 20061208
  Serious: Yes (Other)
  Sender: FDA-Public Use
  Company Number: PHEH2006US09481

PATIENT
  Age: 54 Year
  Sex: Female
  Weight: 90.249 kg

DRUGS (5)
  1. 5-FU + EPIRUBICIN + CYCLOPHOSPHAMIDE [Concomitant]
  2. AVASTIN [Concomitant]
  3. CARBOPLATIN [Concomitant]
  4. TAXOTERE [Concomitant]
  5. ZOMETA [Suspect]
     Indication: METASTASES TO BONE
     Dosage: 4 MG EVERY MONTH
     Dates: start: 20050919, end: 20060202

REACTIONS (3)
  - LOOSE TOOTH [None]
  - OSTEONECROSIS [None]
  - PAIN IN JAW [None]
